FAERS Safety Report 10229634 (Version 1)
Quarter: 2014Q2

REPORT INFORMATION
  Report Type: Spontaneous
  Country: US (occurrence: None)
  Receive Date: 20140610
  Receipt Date: 20140610
  Transmission Date: 20141212
  Serious: Yes (Death)
  Sender: FDA-Public Use
  Company Number: None

PATIENT
  Age: 64 Year
  Sex: Male
  Weight: 104.33 kg

DRUGS (3)
  1. LISINOPRIL [Suspect]
     Indication: HYPERTENSION
     Dosage: 1 PILL  TAKE 1 TABLET BY MOUTH EVERY DAY  BY MOUTH?START DATE: ABOUT A YEAR AGO???
     Route: 048
     Dates: end: 20140512
  2. FENOFIBRATE [Concomitant]
  3. VITAMINTS FOR MEN [Concomitant]

REACTIONS (2)
  - Pharyngeal oedema [None]
  - Oropharyngeal pain [None]
